FAERS Safety Report 13710087 (Version 1)
Quarter: 2017Q3

REPORT INFORMATION
  Report Type: Spontaneous
  Country: US (occurrence: US)
  Receive Date: 20170703
  Receipt Date: 20170703
  Transmission Date: 20171127
  Serious: No
  Sender: FDA-Public Use
  Company Number: US-TEVA-747617ACC

PATIENT
  Sex: Male

DRUGS (2)
  1. LIDOCAINE TOPICAL 5 PERCENT [Suspect]
     Active Substance: LIDOCAINE
     Indication: PAIN IN EXTREMITY
     Dosage: FORM OF ADMINISTRATION: PATCH
     Route: 061
  2. LIDOCAINE TOPICAL 5 PERCENT [Suspect]
     Active Substance: LIDOCAINE
     Indication: ARTHRALGIA

REACTIONS (2)
  - Wrong technique in product usage process [Unknown]
  - Product adhesion issue [Unknown]
